FAERS Safety Report 8158077-6 (Version None)
Quarter: 2012Q1

REPORT INFORMATION
  Report Type: 
  Country: None (occurrence: None)
  Receive Date: 20120222
  Receipt Date: 20120216
  Transmission Date: 20120608
  Serious: Yes (Hospitalization, Disabling, Other)
  Sender: FDA-Public Use
  Company Number: US-MERCK-1109USA02546

PATIENT
  Age: 47 Year
  Sex: Male

DRUGS (14)
  1. FOSAMAX [Suspect]
     Indication: OSTEOPOROSIS
     Route: 048
     Dates: start: 20000101, end: 20080501
  2. DILANTIN [Concomitant]
     Route: 065
     Dates: start: 19990101
  3. KLONOPIN [Concomitant]
     Indication: ANXIETY
     Route: 065
     Dates: start: 19990101
  4. AVINZA [Concomitant]
     Route: 065
     Dates: start: 20060101, end: 20060101
  5. METHADONE HYDROCHLORIDE [Concomitant]
     Route: 065
     Dates: start: 20040101, end: 20060101
  6. NORCO [Concomitant]
     Route: 065
     Dates: start: 20010101
  7. SOMA [Concomitant]
     Route: 065
  8. MORPHINE SULFATE [Concomitant]
     Route: 065
     Dates: start: 20060101
  9. NEURONTIN [Concomitant]
     Route: 065
  10. CELEBREX [Concomitant]
     Indication: PAIN
     Route: 065
     Dates: start: 20000101, end: 20100301
  11. FOSAMAX [Suspect]
     Route: 048
     Dates: start: 20080601, end: 20090901
  12. LORCET-HD [Concomitant]
     Route: 065
  13. ENALAPRIL MALEATE [Concomitant]
     Route: 065
     Dates: start: 20060101, end: 20071001
  14. HYDROCODONE [Concomitant]
     Route: 065
     Dates: start: 20010101

REACTIONS (16)
  - ANGIOPATHY [None]
  - OSTEOMYELITIS [None]
  - COORDINATION ABNORMAL [None]
  - FALL [None]
  - OSTEONECROSIS OF JAW [None]
  - CEREBROVASCULAR ACCIDENT [None]
  - TOOTH DISORDER [None]
  - DENTAL CARIES [None]
  - MIGRAINE [None]
  - FISTULA DISCHARGE [None]
  - NECK INJURY [None]
  - DEVICE RELATED INFECTION [None]
  - BONE DISORDER [None]
  - ADVERSE EVENT [None]
  - JAW DISORDER [None]
  - PERIODONTAL DISEASE [None]
